FAERS Safety Report 6104982-1 (Version None)
Quarter: 2009Q1

REPORT INFORMATION
  Report Type: 
  Country: None (occurrence: None)
  Receive Date: 20090304
  Receipt Date: 20090220
  Transmission Date: 20090719
  Serious: Yes (Other)
  Sender: FDA-Public Use
  Company Number: 2009S1003204

PATIENT
  Age: 11 Year
  Sex: Male
  Weight: 38.1022 kg

DRUGS (8)
  1. LEVETIRACETAM [Suspect]
     Indication: COMPLEX PARTIAL SEIZURES
     Dosage: 750 MG; EVERY MORNING; ORAL; 750 MG; AT BEDTIME; ORAL
     Route: 048
     Dates: start: 20090201, end: 20090201
  2. LEVETIRACETAM [Suspect]
     Indication: COMPLEX PARTIAL SEIZURES
     Dosage: 750 MG; EVERY MORNING; ORAL; 750 MG; AT BEDTIME; ORAL
     Route: 048
     Dates: start: 20090201, end: 20090201
  3. DILANTIN [Suspect]
     Indication: COMPLEX PARTIAL SEIZURES
     Dosage: DAILY; ORAL
     Route: 048
     Dates: start: 20070101
  4. LEVETIRACETAM [Suspect]
     Indication: COMPLEX PARTIAL SEIZURES
     Dosage: 1500 MG; DAILY; ORAL; 1500 MG; DAILY; ORAL
     Route: 048
     Dates: start: 20070101, end: 20090201
  5. LEVETIRACETAM [Suspect]
     Indication: COMPLEX PARTIAL SEIZURES
     Dosage: 1500 MG; DAILY; ORAL; 1500 MG; DAILY; ORAL
     Route: 048
     Dates: start: 20090201
  6. FISH OIL (CON.) [Concomitant]
  7. VITAMINS (CON.) [Concomitant]
  8. ADDERALL (CON.0 [Concomitant]

REACTIONS (4)
  - ANTICONVULSANT DRUG LEVEL DECREASED [None]
  - CONVULSION [None]
  - PSYCHOMOTOR HYPERACTIVITY [None]
  - THERAPEUTIC RESPONSE UNEXPECTED WITH DRUG SUBSTITUTION [None]
